FAERS Safety Report 18400243 (Version 4)
Quarter: 2021Q2

REPORT INFORMATION
  Report Type: Spontaneous
  Country: US (occurrence: US)
  Receive Date: 20201019
  Receipt Date: 20210507
  Transmission Date: 20210717
  Serious: No
  Sender: FDA-Public Use
  Company Number: US-PFIZER INC-2020401092

PATIENT
  Age: 74 Year
  Sex: Female
  Weight: 58 kg

DRUGS (3)
  1. IBRANCE [Suspect]
     Active Substance: PALBOCICLIB
     Dosage: 100MG
  2. IBRANCE [Suspect]
     Active Substance: PALBOCICLIB
     Indication: BREAST CANCER FEMALE
     Dosage: 125 MG, 1X/DAY (STARTED SINCE 3 YEARS AGO, EVENING AFTER DINNER)
     Route: 048
  3. IBRANCE [Suspect]
     Active Substance: PALBOCICLIB
     Dosage: UNK

REACTIONS (10)
  - Fear [Unknown]
  - Crying [Unknown]
  - Muscle disorder [Unknown]
  - Myalgia [Recovered/Resolved]
  - Malaise [Unknown]
  - Bradykinesia [Unknown]
  - Nausea [Recovered/Resolved]
  - Blood count abnormal [Unknown]
  - Asthenia [Unknown]
  - Feeling abnormal [Unknown]

NARRATIVE: CASE EVENT DATE: 202010
